FAERS Safety Report 20169596 (Version 1)
Quarter: 2021Q4

REPORT INFORMATION
  Report Type: Report from Study
  Country: DE (occurrence: DE)
  Receive Date: 20211210
  Receipt Date: 20211210
  Transmission Date: 20220303
  Serious: Yes (Other)
  Sender: FDA-Public Use
  Company Number: DE-CELGENE-DEU-20211201495

PATIENT
  Age: 62 Year
  Sex: Male

DRUGS (8)
  1. LENALIDOMIDE [Suspect]
     Active Substance: LENALIDOMIDE
     Indication: Plasma cell myeloma
     Route: 048
     Dates: start: 20210803, end: 20211020
  2. CARFILZOMIB [Suspect]
     Active Substance: CARFILZOMIB
     Indication: Plasma cell myeloma
     Route: 041
     Dates: start: 20210803, end: 20211015
  3. CARFILZOMIB [Suspect]
     Active Substance: CARFILZOMIB
     Indication: Plasma cell myeloma
  4. CARFILZOMIB [Suspect]
     Active Substance: CARFILZOMIB
     Indication: Plasma cell myeloma
  5. DEXAMETHASONE [Suspect]
     Active Substance: DEXAMETHASONE
     Indication: Anaphylactic reaction
     Route: 065
     Dates: start: 20210803, end: 20211021
  6. DEXAMETHASONE [Suspect]
     Active Substance: DEXAMETHASONE
     Dosage: 12 MILLIGRAM
     Route: 041
     Dates: start: 20211029, end: 20211029
  7. DEXAMETHASONE [Suspect]
     Active Substance: DEXAMETHASONE
     Dosage: 8 MILLIGRAM
     Route: 048
     Dates: start: 20211030, end: 20211101
  8. CYCLOPHOSPHAMIDE [Concomitant]
     Active Substance: CYCLOPHOSPHAMIDE
     Indication: Haematopoietic stem cell mobilisation
     Dosage: 4900 MILLIGRAM
     Route: 041
     Dates: start: 20211029, end: 20211029

REACTIONS (1)
  - Severe acute respiratory syndrome [Not Recovered/Not Resolved]

NARRATIVE: CASE EVENT DATE: 20211125
